FAERS Safety Report 5537413-0 (Version None)
Quarter: 2007Q4

REPORT INFORMATION
  Report Type: 
  Country: None (occurrence: None)
  Receive Date: 20071207
  Receipt Date: 20071128
  Transmission Date: 20080405
  Serious: Yes (Hospitalization)
  Sender: FDA-Public Use
  Company Number: B0498175A

PATIENT
  Age: 64 Year
  Sex: Female

DRUGS (3)
  1. ZOPHREN [Suspect]
     Indication: PROPHYLAXIS
     Dosage: 8MG PER DAY
     Route: 042
     Dates: start: 20070717, end: 20070717
  2. TAXOTERE [Suspect]
     Indication: MALIGNANT NEOPLASM OF PLEURA
     Route: 042
     Dates: start: 20070717, end: 20070717
  3. SOLU-MEDROL [Concomitant]
     Route: 065
     Dates: start: 20070717, end: 20070717

REACTIONS (4)
  - BRONCHOSPASM [None]
  - CYANOSIS [None]
  - DYSPNOEA [None]
  - OXYGEN SATURATION DECREASED [None]
